FAERS Safety Report 5089849-2 (Version None)
Quarter: 2006Q3

REPORT INFORMATION
  Report Type: 
  Country: None (occurrence: None)
  Receive Date: 20060828
  Receipt Date: 20060816
  Transmission Date: 20061208
  Serious: Yes (Death, Other)
  Sender: FDA-Public Use
  Company Number: CZ-JNJFOC-20060704109

PATIENT
  Age: 39 Year
  Sex: Male

DRUGS (7)
  1. REMICADE [Suspect]
  2. REMICADE [Suspect]
     Indication: CROHN'S DISEASE
     Dosage: 5 MG/KG AT WEEKS 1,2, AND 6
  3. PREDNISONE TAB [Concomitant]
     Indication: CROHN'S DISEASE
  4. AZATHIOPRINE [Concomitant]
     Indication: CROHN'S DISEASE
  5. MESALAZINE [Concomitant]
     Indication: CROHN'S DISEASE
  6. BUDESONIDE [Concomitant]
     Indication: CROHN'S DISEASE
  7. CIPROFLOXACIN [Concomitant]
     Indication: CROHN'S DISEASE
     Dosage: FOR 12 WEEKS

REACTIONS (2)
  - FILARIASIS [None]
  - RECTAL CANCER STAGE II [None]
